FAERS Safety Report 8041668-0 (Version None)
Quarter: 2012Q1

REPORT INFORMATION
  Report Type: 
  Country: None (occurrence: None)
  Receive Date: 20120112
  Receipt Date: 20120104
  Transmission Date: 20120608
  Serious: Yes (Hospitalization, Other)
  Sender: FDA-Public Use
  Company Number: US-ELI_LILLY_AND_COMPANY-US201201002284

PATIENT
  Sex: Male

DRUGS (5)
  1. SEROQUEL [Concomitant]
  2. DULOXETINE HYDROCHLORIDE [Suspect]
     Indication: MAJOR DEPRESSION
     Dosage: 30 MG, BID
  3. ZYPREXA [Suspect]
     Dosage: 5 MG Q4HPRN
  4. ZYPREXA [Suspect]
     Indication: MAJOR DEPRESSION
     Dosage: 10 MG, EACH EVENING
  5. TRAZODONE HCL [Concomitant]

REACTIONS (3)
  - HOSPITALISATION [None]
  - WRONG TECHNIQUE IN DRUG USAGE PROCESS [None]
  - OFF LABEL USE [None]
